FAERS Safety Report 4658244-X (Version None)
Quarter: 2005Q2

REPORT INFORMATION
  Report Type: 
  Country: None (occurrence: None)
  Receive Date: 20050505
  Receipt Date: 20050317
  Transmission Date: 20051028
  Serious: No
  Sender: FDA-Public Use
  Company Number: 2005USFACT00419

PATIENT
  Age: 19 Year
  Sex: Female

DRUGS (5)
  1. FACTIVE [Suspect]
     Indication: RESPIRATORY TRACT INFECTION BACTERIAL
     Dosage: 320.00 MG, SINGLE, ORAL
     Route: 048
  2. SINGULAIR [Concomitant]
  3. SEASONALE [Concomitant]
  4. ZYRTEC [Concomitant]
  5. COMBIVENT [Concomitant]

REACTIONS (6)
  - CHEST DISCOMFORT [None]
  - COUGH [None]
  - DYSPNOEA [None]
  - MUSCLE TWITCHING [None]
  - NASAL CONGESTION [None]
  - RHINORRHOEA [None]
